FAERS Safety Report 22295283 (Version 1)
Quarter: 2023Q2

REPORT INFORMATION
  Report Type: Spontaneous
  Country: HR (occurrence: HR)
  Receive Date: 20230508
  Receipt Date: 20230508
  Transmission Date: 20230722
  Serious: Yes (Other)
  Sender: FDA-Public Use
  Company Number: HR-ELI_LILLY_AND_COMPANY-HR202304015002

PATIENT
  Age: 67 Year
  Sex: Female

DRUGS (2)
  1. OLUMIANT [Suspect]
     Active Substance: BARICITINIB
     Indication: Rheumatoid arthritis
     Dosage: UNK UNK, UNKNOWN
     Route: 065
     Dates: start: 201901
  2. OLUMIANT [Suspect]
     Active Substance: BARICITINIB
     Dosage: UNK, UNKNOWN
     Route: 065

REACTIONS (9)
  - Hip fracture [Unknown]
  - Fall [Unknown]
  - Cataract [Unknown]
  - Age-related macular degeneration [Unknown]
  - Microcytic anaemia [Unknown]
  - Haemorrhoids [Unknown]
  - Lung disorder [Unknown]
  - Arthralgia [Unknown]
  - Pleural effusion [Unknown]

NARRATIVE: CASE EVENT DATE: 20200101
